FAERS Safety Report 6122140-1 (Version None)
Quarter: 2009Q1

REPORT INFORMATION
  Report Type: 
  Country: None (occurrence: None)
  Receive Date: 20090318
  Receipt Date: 20090309
  Transmission Date: 20090719
  Serious: Yes (Other)
  Sender: FDA-Public Use
  Company Number: US-KINGPHARMUSA00001-K200900269

PATIENT
  Age: 30 Year
  Sex: Male

DRUGS (1)
  1. EPIPEN [Suspect]
     Indication: ACCIDENTAL EXPOSURE
     Dosage: 0.3 MG, SINGLE

REACTIONS (6)
  - ACCIDENTAL EXPOSURE [None]
  - CAPILLARY DISORDER [None]
  - INJECTION SITE INJURY [None]
  - INJECTION SITE ISCHAEMIA [None]
  - PAIN [None]
  - PALLOR [None]
